FAERS Safety Report 11785250 (Version 1)
Quarter: 2015Q4

REPORT INFORMATION
  Report Type: Spontaneous
  Country: US (occurrence: None)
  Receive Date: 20151125
  Receipt Date: 20151125
  Transmission Date: 20160305
  Serious: Yes (Hospitalization, Other)
  Sender: FDA-Public Use
  Company Number: None

PATIENT
  Age: 77 Year
  Sex: Female
  Weight: 86.18 kg

DRUGS (10)
  1. PROBIOTICS [Concomitant]
     Active Substance: PROBIOTICS NOS
  2. ELIQUIST [Concomitant]
  3. MACRODANTIN [Concomitant]
     Active Substance: NITROFURANTOIN
  4. NOVASC [Concomitant]
  5. FLECAINIDE 100MG. TAB ROXA GENERIC FOR FLECAINIDE ACETATE [Suspect]
     Active Substance: FLECAINIDE
     Indication: ATRIAL FIBRILLATION
     Route: 048
     Dates: start: 20151101, end: 20151103
  6. FISH OIL [Concomitant]
     Active Substance: FISH OIL
  7. DIOVAN [Concomitant]
     Active Substance: VALSARTAN
  8. TROPRAL [Concomitant]
  9. LEXAPRO [Concomitant]
     Active Substance: ESCITALOPRAM OXALATE
  10. LIVOLA [Concomitant]

REACTIONS (3)
  - Dyspnoea [None]
  - Wheezing [None]
  - Gait disturbance [None]

NARRATIVE: CASE EVENT DATE: 20151103
